FAERS Safety Report 23232637 (Version 2)
Quarter: 2024Q1

REPORT INFORMATION
  Report Type: Spontaneous
  Country: US (occurrence: US)
  Receive Date: 20231128
  Receipt Date: 20240112
  Transmission Date: 20240410
  Serious: No
  Sender: FDA-Public Use
  Company Number: US-JNJFOC-20231150707

PATIENT
  Sex: Female

DRUGS (2)
  1. TREMFYA [Suspect]
     Active Substance: GUSELKUMAB
     Indication: Psoriatic arthropathy
     Route: 065
     Dates: start: 20230817
  2. IXEKIZUMAB [Concomitant]
     Active Substance: IXEKIZUMAB

REACTIONS (4)
  - Device malfunction [Unknown]
  - Product leakage [Unknown]
  - Product dose omission issue [Unknown]
  - Product label issue [Unknown]
